FAERS Safety Report 5296886-1 (Version None)
Quarter: 2007Q2

REPORT INFORMATION
  Report Type: 
  Country: None (occurrence: None)
  Receive Date: 20070413
  Receipt Date: 20070405
  Transmission Date: 20071010
  Serious: Yes (Other)
  Sender: FDA-Public Use
  Company Number: JP-PFIZER INC-2007028376

PATIENT
  Age: 58 Year
  Sex: Female

DRUGS (13)
  1. ALDACTAZIDE [Suspect]
     Dosage: DAILY DOSE:25MG
     Route: 048
  2. ZYLORIC ^FRESENIUS^ [Concomitant]
     Route: 048
  3. CALTAN [Concomitant]
     Route: 048
  4. LIPITOR [Concomitant]
     Route: 048
  5. LENDORMIN [Concomitant]
     Route: 048
  6. MYSLEE [Concomitant]
     Route: 048
  7. ZANTAC [Concomitant]
     Route: 048
  8. BLOPRESS [Concomitant]
     Route: 048
  9. LUVOX [Concomitant]
     Route: 048
  10. CALSLOT [Concomitant]
     Route: 048
  11. CARDENALIN [Concomitant]
     Route: 048
  12. LASIX [Concomitant]
  13. ALLOID [Concomitant]
     Route: 048

REACTIONS (3)
  - FACE OEDEMA [None]
  - HYPOAESTHESIA [None]
  - LIP SWELLING [None]
